FAERS Safety Report 7532314-0 (Version None)
Quarter: 2011Q2

REPORT INFORMATION
  Report Type: 
  Country: None (occurrence: None)
  Receive Date: 20110608
  Receipt Date: 20110602
  Transmission Date: 20111010
  Serious: No
  Sender: FDA-Public Use
  Company Number: US-MERCK-1105USA03192

PATIENT
  Age: 56 Year
  Sex: Female

DRUGS (9)
  1. AMBIEN [Concomitant]
     Route: 065
  2. DECADRON [Concomitant]
     Route: 065
  3. COMPAZINE [Concomitant]
     Route: 065
  4. SODIUM CHLORIDE [Concomitant]
     Route: 065
     Dates: start: 20110517
  5. BENADRYL [Concomitant]
     Route: 065
  6. VICODIN [Concomitant]
     Route: 065
  7. ZOFRAN [Concomitant]
     Route: 065
  8. PHENERGAN HCL [Concomitant]
     Route: 065
  9. IVEMEND [Suspect]
     Indication: PROPHYLAXIS OF NAUSEA AND VOMITING
     Dosage: 150MG OVER 30MINUTES
     Route: 042
     Dates: start: 20110517, end: 20110517

REACTIONS (1)
  - HYPERSENSITIVITY [None]
